FAERS Safety Report 9212776 (Version 1)
Quarter: 2013Q1

REPORT INFORMATION
  Report Type: Spontaneous
  Country: US (occurrence: None)
  Receive Date: 20120824
  Receipt Date: 20120824
  Transmission Date: 20140127
  Serious: Yes (Hospitalization)
  Sender: FDA-Public Use
  Company Number: A-US2011-54879

PATIENT
  Age: 64 Year
  Sex: Female

DRUGS (5)
  1. VELETRI [Suspect]
     Indication: PULMONARY ARTERIAL HYPERTENSION
     Route: 042
     Dates: start: 20110915
  2. ADCIRCA (TADALAFIL) [Concomitant]
  3. LETAIRIS (AMBRISTENTAN) [Concomitant]
  4. SILDENAFIL (SILDENAFIL) [Concomitant]
  5. FLOLAN (EPOPROSTENOL SODIUM) [Concomitant]

REACTIONS (2)
  - Pulmonary arterial hypertension [None]
  - Disease progression [None]
